FAERS Safety Report 9223425 (Version 1)
Quarter: 2013Q2

REPORT INFORMATION
  Report Type: Spontaneous
  Country: GB (occurrence: GB)
  Receive Date: 20130410
  Receipt Date: 20130410
  Transmission Date: 20140414
  Serious: Yes (Other)
  Sender: FDA-Public Use
  Company Number: GB-TEVA-396558ISR

PATIENT
  Age: 66 Year
  Sex: Male

DRUGS (5)
  1. ATORVASTATIN [Suspect]
     Dosage: 10 MILLIGRAM DAILY;
     Route: 048
     Dates: start: 201208
  2. VERA-TIL SR [Interacting]
     Dosage: 240 MILLIGRAM DAILY;
     Route: 048
  3. METFORMIN [Concomitant]
     Dosage: 1000 MILLIGRAM DAILY;
  4. GLIPIZIDE [Concomitant]
     Dosage: 15 MILLIGRAM DAILY;
  5. EXENATIDE [Concomitant]
     Dosage: 20 MILLIGRAM DAILY;

REACTIONS (2)
  - Palpitations [Not Recovered/Not Resolved]
  - Drug interaction [Not Recovered/Not Resolved]
